FAERS Safety Report 8921141 (Version 1)
Quarter: 2012Q4

REPORT INFORMATION
  Report Type: 
  Country: SE (occurrence: SE)
  Receive Date: 20121121
  Receipt Date: 20121121
  Transmission Date: 20130627
  Serious: Yes (Hospitalization, Other)
  Sender: FDA-Public Use
  Company Number: SE-PFIZER INC-2012288393

PATIENT
  Age: 69 Year
  Sex: Male
  Weight: 89.6 kg

DRUGS (5)
  1. GENOTROPIN [Suspect]
     Dosage: 0.2 mg, 1x/day, 7 injections/week
     Route: 058
     Dates: start: 20030203
  2. CORTISONE ACETATE [Concomitant]
     Indication: ACTH DECREASED
     Dosage: UNK
     Dates: start: 19971007
  3. TESTOSTERONE ENANTATE [Concomitant]
     Indication: LUTEINISING HORMONE DEFICIENCY
     Dosage: UNK
     Dates: start: 19971007
  4. TESTOSTERONE ENANTATE [Concomitant]
     Indication: FOLLICLE-STIMULATING HORMONE DEFICIENCY
  5. TESTOSTERONE ENANTATE [Concomitant]
     Indication: TESTICULAR HYPOGONADISM

REACTIONS (1)
  - Oesophageal infection [Unknown]
